FAERS Safety Report 16719613 (Version 1)
Quarter: 2019Q3

REPORT INFORMATION
  Report Type: Spontaneous
  Country: US (occurrence: US)
  Receive Date: 20190702
  Receipt Date: 20190702
  Transmission Date: 20191005
  Serious: Yes (Death)
  Sender: FDA-Public Use
  Company Number: None

PATIENT

DRUGS (1)
  1. THORAZINE [Suspect]
     Active Substance: CHLORPROMAZINE

REACTIONS (9)
  - Fall [None]
  - Contraindicated product administered [None]
  - Contusion [None]
  - Motor dysfunction [None]
  - Incontinence [None]
  - Disorientation [None]
  - Product prescribing issue [None]
  - Movement disorder [None]
  - Cognitive disorder [None]

NARRATIVE: CASE EVENT DATE: 20190306
